FAERS Safety Report 9315597 (Version 2)
Quarter: 2013Q2

REPORT INFORMATION
  Report Type: Spontaneous
  Country: PH (occurrence: PH)
  Receive Date: 20130529
  Receipt Date: 20130612
  Transmission Date: 20140414
  Serious: Yes (Death, Life-Threatening, Other)
  Sender: FDA-Public Use
  Company Number: PH-009507513-1305PHL015680

PATIENT
  Age: 66 Year
  Sex: Male

DRUGS (1)
  1. JANUMET [Suspect]
     Indication: BLOOD GLUCOSE INCREASED
     Dosage: UNK
     Route: 048
     Dates: start: 201201

REACTIONS (1)
  - Laryngeal cancer stage IV [Fatal]
